FAERS Safety Report 20427106 (Version 1)
Quarter: 2022Q1

REPORT INFORMATION
  Report Type: Report from Study
  Country: US (occurrence: US)
  Receive Date: 20220204
  Receipt Date: 20220204
  Transmission Date: 20220423
  Serious: No
  Sender: FDA-Public Use
  Company Number: US-EXELIXIS-CABO-21043276

PATIENT
  Sex: Male

DRUGS (2)
  1. CABOMETYX [Suspect]
     Active Substance: CABOZANTINIB S-MALATE
     Indication: Renal cell carcinoma
     Dosage: 60 MG, QD (20 MG X 3)
     Route: 048
     Dates: start: 20210728
  2. CABOMETYX [Suspect]
     Active Substance: CABOZANTINIB S-MALATE
     Dosage: 40 MG, QD
     Route: 048
     Dates: start: 20211027

REACTIONS (12)
  - Burning sensation [Unknown]
  - Skin ulcer [Recovered/Resolved]
  - Taste disorder [Unknown]
  - Somnolence [Unknown]
  - Flatulence [Unknown]
  - Skin papilloma [Recovered/Resolved]
  - Faeces soft [Recovering/Resolving]
  - Fatigue [Unknown]
  - Dizziness [Unknown]
  - Blood pressure increased [Recovering/Resolving]
  - Dyspepsia [Recovering/Resolving]
  - Asthenia [Recovering/Resolving]
